FAERS Safety Report 6291709-6 (Version None)
Quarter: 2009Q3

REPORT INFORMATION
  Report Type: 
  Country: None (occurrence: None)
  Receive Date: 20090730
  Receipt Date: 20090722
  Transmission Date: 20100115
  Serious: Yes (Life-Threatening, Other)
  Sender: FDA-Public Use
  Company Number: BE-ELI_LILLY_AND_COMPANY-BE200905003381

PATIENT
  Sex: Female
  Weight: 87 kg

DRUGS (6)
  1. FORTEO [Suspect]
     Indication: OSTEOPOROSIS
     Dosage: 20 UG, DAILY (1/D)
     Route: 058
     Dates: start: 20080814, end: 20090615
  2. SINGULAIR [Concomitant]
     Indication: ASTHMA
     Dosage: 1 D/F, UNKNOWN
     Route: 065
     Dates: start: 20000101
  3. CORUNO [Concomitant]
     Indication: CARDIAC VALVE DISEASE
     Dosage: 1 D/F, UNKNOWN
     Route: 065
     Dates: start: 20000101
  4. FLUVAX [Concomitant]
     Dosage: 1 D/F, UNKNOWN
     Route: 065
     Dates: start: 20000101
  5. FOSINIL [Concomitant]
     Dosage: 1 D/F, UNKNOWN
     Route: 065
     Dates: start: 20000101
  6. DAKAR [Concomitant]
     Indication: OESOPHAGITIS
     Dosage: 1 D/F, UNKNOWN
     Route: 065
     Dates: start: 20000101

REACTIONS (6)
  - BLOOD CHOLESTEROL INCREASED [None]
  - BLOOD URIC ACID INCREASED [None]
  - DYSPNOEA [None]
  - GAIT DISTURBANCE [None]
  - TACHYCARDIA [None]
  - WEIGHT INCREASED [None]
